FAERS Safety Report 14477475 (Version 1)
Quarter: 2018Q1

REPORT INFORMATION
  Report Type: Report from Study
  Country: US (occurrence: US)
  Receive Date: 20180201
  Receipt Date: 20180201
  Transmission Date: 20180509
  Serious: No
  Sender: FDA-Public Use
  Company Number: US-EXELIXIS-CABO-17011079

PATIENT
  Age: 60 Year
  Sex: Male

DRUGS (10)
  1. MULTIVITAMINS [Concomitant]
     Active Substance: VITAMINS
  2. PHOSPHO [Concomitant]
  3. MAGNESIUM [Concomitant]
     Active Substance: MAGNESIUM
  4. ATORVASTATIN [Concomitant]
     Active Substance: ATORVASTATIN
  5. ASPIRIN. [Concomitant]
     Active Substance: ASPIRIN
  6. LEVOTHYROXINE. [Concomitant]
     Active Substance: LEVOTHYROXINE
  7. LIPITOR [Concomitant]
     Active Substance: ATORVASTATIN CALCIUM
  8. OXYCODONE [Concomitant]
     Active Substance: OXYCODONE
  9. CABOMETYX [Suspect]
     Active Substance: CABOZANTINIB S-MALATE
     Indication: RENAL CANCER
     Dosage: 40 MG, QD
     Route: 048
     Dates: start: 20161216
  10. METOPROLOL. [Concomitant]
     Active Substance: METOPROLOL

REACTIONS (3)
  - Local reaction [Not Recovered/Not Resolved]
  - Diarrhoea [Unknown]
  - Fatigue [Unknown]

NARRATIVE: CASE EVENT DATE: 201710
